FAERS Safety Report 9908596 (Version 1)
Quarter: 2014Q1

REPORT INFORMATION
  Report Type: Spontaneous
  Country: US (occurrence: None)
  Receive Date: 20140214
  Receipt Date: 20140214
  Transmission Date: 20141002
  Serious: Yes (Hospitalization)
  Sender: FDA-Public Use
  Company Number: None

PATIENT
  Age: 94 Year
  Sex: Male
  Weight: 77 kg

DRUGS (10)
  1. COUMADIN [Suspect]
     Indication: ATRIAL FIBRILLATION
     Dosage: CHRONIC?4MG ALT 2MG DAILY PO
     Route: 048
  2. FLAGYL [Suspect]
     Indication: CLOSTRIDIUM DIFFICILE INFECTION
     Dosage: RECENT
     Route: 048
  3. OMEPRAZOLE [Concomitant]
  4. CULTURELLE [Concomitant]
  5. FINASTERIDE [Concomitant]
  6. KCL [Concomitant]
  7. LASIX [Concomitant]
  8. ROSUVASTATIN [Concomitant]
  9. DOCUSATE [Concomitant]
  10. ARANESP [Concomitant]

REACTIONS (3)
  - International normalised ratio increased [None]
  - Haematuria [None]
  - Urinary tract infection [None]
